FAERS Safety Report 8271890-X (Version None)
Quarter: 2012Q2

REPORT INFORMATION
  Report Type: 
  Country: None (occurrence: None)
  Receive Date: 20120410
  Receipt Date: 20120403
  Transmission Date: 20120825
  Serious: Yes (Other)
  Sender: FDA-Public Use
  Company Number: US-ALEXION-A201200563

PATIENT
  Age: 22 Year

DRUGS (6)
  1. SOLIRIS [Suspect]
     Dosage: 900 MG, Q2W
     Route: 042
     Dates: end: 20110101
  2. SOLIRIS [Suspect]
     Indication: PAROXYSMAL NOCTURNAL HAEMOGLOBINURIA
     Dosage: 600 MG, QW
     Route: 042
  3. FOLIC ACID [Concomitant]
     Dosage: UNK
  4. IRON [Concomitant]
  5. VITAMIN B-12 [Concomitant]
     Dosage: UNK
  6. SOLIRIS [Suspect]
     Dosage: 900 MG, Q 12 DAYS
     Route: 042
     Dates: start: 20110101

REACTIONS (5)
  - WHITE BLOOD CELL COUNT DECREASED [None]
  - PLATELET COUNT DECREASED [None]
  - DRUG INEFFECTIVE [None]
  - HAEMOGLOBIN DECREASED [None]
  - HAEMOLYSIS [None]
